FAERS Safety Report 13182119 (Version 1)
Quarter: 2017Q1

REPORT INFORMATION
  Report Type: Spontaneous
  Country: US (occurrence: US)
  Receive Date: 20170202
  Receipt Date: 20170202
  Transmission Date: 20170428
  Serious: Yes (Other)
  Sender: FDA-Public Use
  Company Number: None

PATIENT
  Age: 79 Year
  Sex: Male
  Weight: 62.55 kg

DRUGS (5)
  1. BENZONATATE. [Suspect]
     Active Substance: BENZONATATE
     Indication: NASOPHARYNGITIS
     Dosage: ?          QUANTITY:1 CAPSULE(S);?
     Route: 048
     Dates: start: 20161231, end: 20161231
  2. BENZONATATE. [Suspect]
     Active Substance: BENZONATATE
     Indication: OROPHARYNGEAL PAIN
     Dosage: ?          QUANTITY:1 CAPSULE(S);?
     Route: 048
     Dates: start: 20161231, end: 20161231
  3. BENZONATATE. [Suspect]
     Active Substance: BENZONATATE
     Indication: COUGH
     Dosage: ?          QUANTITY:1 CAPSULE(S);?
     Route: 048
     Dates: start: 20161231, end: 20161231
  4. BENZONATATE. [Suspect]
     Active Substance: BENZONATATE
     Indication: UPPER-AIRWAY COUGH SYNDROME
     Dosage: ?          QUANTITY:1 CAPSULE(S);?
     Route: 048
     Dates: start: 20161231, end: 20161231
  5. BENZONATATE. [Suspect]
     Active Substance: BENZONATATE
     Indication: BLOOD GLUCOSE INCREASED
     Dosage: ?          QUANTITY:1 CAPSULE(S);?
     Route: 048
     Dates: start: 20161231, end: 20161231

REACTIONS (3)
  - Dizziness [None]
  - Tremor [None]
  - Dysphagia [None]

NARRATIVE: CASE EVENT DATE: 20161231
